FAERS Safety Report 7395145-0 (Version None)
Quarter: 2011Q2

REPORT INFORMATION
  Report Type: 
  Country: None (occurrence: None)
  Receive Date: 20110405
  Receipt Date: 20110323
  Transmission Date: 20111010
  Serious: Yes (Hospitalization, Other)
  Sender: FDA-Public Use
  Company Number: PHEH2009US07521

PATIENT
  Sex: Female

DRUGS (11)
  1. PREMARIN [Concomitant]
  2. NEXIUM [Concomitant]
  3. LEVOTHYROXINE [Concomitant]
  4. ADVAIR DISKUS 100/50 [Concomitant]
  5. METRONIDAZOLE [Concomitant]
  6. MULTI-VITAMINS [Concomitant]
  7. PENICILLIN ^GRUNENTHAL^ [Concomitant]
  8. ZOMETA [Suspect]
     Dosage: UNK
     Dates: start: 20050401, end: 20060701
  9. OXYCODONE [Concomitant]
  10. MUCINEX [Concomitant]
  11. CALTRATE [Concomitant]

REACTIONS (45)
  - DECREASED INTEREST [None]
  - PERIODONTITIS [None]
  - DIVERTICULUM [None]
  - ARTHROPATHY [None]
  - FIBROMA [None]
  - BLOOD CHROMOGRANIN A INCREASED [None]
  - OSTEOARTHRITIS [None]
  - METASTASES TO SPINE [None]
  - SPINAL FRACTURE [None]
  - AORTIC VALVE INCOMPETENCE [None]
  - ANXIETY [None]
  - HIATUS HERNIA [None]
  - INTERVERTEBRAL DISC PROTRUSION [None]
  - ATELECTASIS [None]
  - CARCINOID TUMOUR [None]
  - UPPER RESPIRATORY TRACT INFECTION [None]
  - COLONIC POLYP [None]
  - DYSPHAGIA [None]
  - BONE DISORDER [None]
  - OSTEONECROSIS OF JAW [None]
  - LUMBAR SPINAL STENOSIS [None]
  - RHINORRHOEA [None]
  - CHOLELITHIASIS [None]
  - GASTRIC POLYPS [None]
  - HYPOTHYROIDISM [None]
  - INJURY [None]
  - GINGIVAL PAIN [None]
  - DENTAL CARIES [None]
  - METASTASES TO BONE [None]
  - ADRENAL MASS [None]
  - SPINAL DISORDER [None]
  - TOOTHACHE [None]
  - PAIN [None]
  - ADNEXA UTERI MASS [None]
  - COUGH [None]
  - HEPATIC LESION [None]
  - FLATULENCE [None]
  - WOUND [None]
  - GASTROOESOPHAGEAL REFLUX DISEASE [None]
  - ASTHMA [None]
  - GALLBLADDER DISORDER [None]
  - HYPERKERATOSIS [None]
  - EXOSTOSIS [None]
  - MUSCLE SPASMS [None]
  - RENAL MASS [None]
